FAERS Safety Report 15499944 (Version 1)
Quarter: 2018Q4

REPORT INFORMATION
  Report Type: Report from Study
  Country: US (occurrence: US)
  Receive Date: 20181015
  Receipt Date: 20181015
  Transmission Date: 20190205
  Serious: No
  Sender: FDA-Public Use
  Company Number: PHEH2018US042483

PATIENT
  Age: 38 Year
  Sex: Male

DRUGS (1)
  1. COSENTYX [Suspect]
     Active Substance: SECUKINUMAB
     Indication: PSORIASIS
     Route: 058
     Dates: start: 201803

REACTIONS (4)
  - Pruritus [Recovered/Resolved]
  - Injection site pain [Recovered/Resolved]
  - Skin swelling [Unknown]
  - Nipple pain [Recovered/Resolved]

NARRATIVE: CASE EVENT DATE: 201808
